FAERS Safety Report 11096829 (Version 1)
Quarter: 2015Q2

REPORT INFORMATION
  Report Type: Spontaneous
  Country: US (occurrence: None)
  Receive Date: 20150506
  Receipt Date: 20150506
  Transmission Date: 20150821
  Serious: Yes (Hospitalization)
  Sender: FDA-Public Use
  Company Number: None

PATIENT
  Age: 65 Year
  Sex: Female
  Weight: 69.6 kg

DRUGS (1)
  1. METFORMIN HYDROCHLORIDE. [Suspect]
     Active Substance: METFORMIN HYDROCHLORIDE
     Indication: FEBRILE NEUTROPENIA
     Dates: start: 20150502

REACTIONS (4)
  - Febrile neutropenia [None]
  - Pyrexia [None]
  - Chills [None]
  - Blood lactic acid increased [None]

NARRATIVE: CASE EVENT DATE: 20150502
